FAERS Safety Report 16307435 (Version 2)
Quarter: 2019Q2

REPORT INFORMATION
  Report Type: Spontaneous
  Country: CR (occurrence: CR)
  Receive Date: 20190514
  Receipt Date: 20190518
  Transmission Date: 20190711
  Serious: No
  Sender: FDA-Public Use
  Company Number: CR-ROCHE-2316910

PATIENT
  Age: 18 Year
  Sex: Female

DRUGS (2)
  1. ACTEMRA [Suspect]
     Active Substance: TOCILIZUMAB
     Indication: STILL^S DISEASE
     Route: 065
  2. ACTEMRA [Suspect]
     Active Substance: TOCILIZUMAB
     Indication: OFF LABEL USE

REACTIONS (5)
  - Intentional product use issue [Unknown]
  - Sense of oppression [Unknown]
  - Dyspnoea [Unknown]
  - Rash generalised [Unknown]
  - Off label use [Unknown]
